FAERS Safety Report 5520805-3 (Version None)
Quarter: 2007Q4

REPORT INFORMATION
  Report Type: 
  Country: None (occurrence: None)
  Receive Date: 20071116
  Receipt Date: 20071116
  Transmission Date: 20080405
  Serious: No
  Sender: FDA-Public Use
  Company Number: None

PATIENT
  Age: 78 Year
  Sex: Female
  Weight: 73 kg

DRUGS (5)
  1. HALOPERIDOL [Suspect]
     Indication: NAUSEA
     Dosage: 1 MG/10 ML Q12H IV PUSH
     Route: 042
     Dates: start: 20071003
  2. HALOPERIDOL [Suspect]
     Indication: NAUSEA
     Dosage: 1 MG/10 ML Q12H IV PUSH
     Route: 042
     Dates: start: 20071004
  3. PANTOPRAZOLE SODIUM [Concomitant]
  4. METRONIDAZOLE [Concomitant]
  5. MORPHINE [Concomitant]

REACTIONS (2)
  - AGITATION [None]
  - LIP SWELLING [None]
